FAERS Safety Report 16554996 (Version 1)
Quarter: 2019Q3

REPORT INFORMATION
  Report Type: Spontaneous
  Country: RO (occurrence: RO)
  Receive Date: 20190710
  Receipt Date: 20190710
  Transmission Date: 20191004
  Serious: Yes (Other)
  Sender: FDA-Public Use
  Company Number: RO-BAUSCH-BL-2019-019399

PATIENT
  Age: 41 Year
  Sex: Female

DRUGS (5)
  1. PENTOXIFYLLINE. [Suspect]
     Active Substance: PENTOXIFYLLINE
     Indication: TAKAYASU^S ARTERITIS
     Route: 065
  2. ACETYLSALICYLIC ACID [Suspect]
     Active Substance: ASPIRIN
     Indication: TAKAYASU^S ARTERITIS
     Route: 065
  3. PREDNISONE. [Suspect]
     Active Substance: PREDNISONE
     Indication: PRODUCT USE IN UNAPPROVED INDICATION
  4. PREDNISONE. [Suspect]
     Active Substance: PREDNISONE
     Indication: TAKAYASU^S ARTERITIS
     Route: 065
  5. FELODIPINE. [Suspect]
     Active Substance: FELODIPINE
     Indication: TAKAYASU^S ARTERITIS
     Route: 065

REACTIONS (3)
  - Takayasu^s arteritis [Unknown]
  - Disease progression [Unknown]
  - Product use in unapproved indication [Unknown]
